FAERS Safety Report 9178925 (Version 2)
Quarter: 2013Q2

REPORT INFORMATION
  Report Type: Spontaneous
  Country: DE (occurrence: DE)
  Receive Date: 20130321
  Receipt Date: 20130403
  Transmission Date: 20140414
  Serious: Yes (Hospitalization, Other)
  Sender: FDA-Public Use
  Company Number: DE-ROCHE-1203681

PATIENT
  Age: 47 Year
  Sex: Female
  Weight: 76 kg

DRUGS (6)
  1. MABTHERA [Suspect]
     Indication: NON-HODGKIN^S LYMPHOMA
     Route: 042
     Dates: start: 20130305
  2. SIMVAHEXAL [Concomitant]
     Route: 048
  3. DELIX (GERMANY) [Concomitant]
     Route: 048
  4. BISOPROLOL [Concomitant]
     Route: 048
  5. TARGIN [Concomitant]
     Dosage: 10/5 MG
     Route: 048
  6. ALLOPURINOL [Concomitant]
     Route: 048

REACTIONS (6)
  - Incontinence [Recovering/Resolving]
  - Visual impairment [Recovering/Resolving]
  - Pyrexia [Recovering/Resolving]
  - Vertigo [Recovering/Resolving]
  - Confusional state [Recovering/Resolving]
  - C-reactive protein increased [Recovering/Resolving]
